FAERS Safety Report 7069466-5 (Version None)
Quarter: 2010Q4

REPORT INFORMATION
  Report Type: 
  Country: None (occurrence: None)
  Receive Date: 20101028
  Receipt Date: 20100820
  Transmission Date: 20110411
  Serious: No
  Sender: FDA-Public Use
  Company Number: US-WYE-H11365109

PATIENT
  Age: 84 Year
  Sex: Female

DRUGS (1)
  1. ADVIL [Suspect]
     Indication: PAIN
     Dosage: ONE OR TWO 200 MG PER DAY
     Route: 048

REACTIONS (3)
  - JAW DISORDER [None]
  - TOOTH DISORDER [None]
  - VOMITING [None]
